FAERS Safety Report 11962147 (Version 3)
Quarter: 2016Q1

REPORT INFORMATION
  Report Type: Spontaneous
  Country: RS (occurrence: RS)
  Receive Date: 20160126
  Receipt Date: 20160218
  Transmission Date: 20160526
  Serious: Yes (Death, Life-Threatening, Hospitalization)
  Sender: FDA-Public Use
  Company Number: RS-ACTAVIS-2016-01254

PATIENT
  Age: 24 Year
  Sex: Female

DRUGS (3)
  1. AMLODIPINE BESYLATE. [Suspect]
     Active Substance: AMLODIPINE BESYLATE
     Indication: INTENTIONAL OVERDOSE
     Dosage: 150 MG, TOTAL
     Route: 048
  2. GLICLAZIDE [Suspect]
     Active Substance: GLICLAZIDE
     Dosage: 2.4 G, TOTAL
     Route: 048
  3. METFORMIN [Suspect]
     Active Substance: METFORMIN HYDROCHLORIDE
     Dosage: 10 G, TOTAL
     Route: 048

REACTIONS (7)
  - Cardiac arrest [Fatal]
  - Cardiotoxicity [Unknown]
  - Intentional overdose [Fatal]
  - Metabolic acidosis [Not Recovered/Not Resolved]
  - Shock [Not Recovered/Not Resolved]
  - Hyperglycaemia [Not Recovered/Not Resolved]
  - Poisoning deliberate [Fatal]
